FAERS Safety Report 7374738-0 (Version None)
Quarter: 2011Q1

REPORT INFORMATION
  Report Type: 
  Country: None (occurrence: None)
  Receive Date: 20110325
  Receipt Date: 20101021
  Transmission Date: 20110831
  Serious: No
  Sender: FDA-Public Use
  Company Number: US-MYLANLABS-2010S1017477

PATIENT
  Age: 76 Year
  Sex: Female
  Weight: 81.65 kg

DRUGS (16)
  1. FENTANYL-100 [Suspect]
     Indication: PAIN IN EXTREMITY
     Dosage: CHANGED Q72H
     Route: 062
     Dates: start: 20100824, end: 20100901
  2. HYDRALAZINE HCL [Concomitant]
  3. FENTANYL-100 [Suspect]
     Indication: ARTHRALGIA
     Dosage: CHANGED Q72H
     Route: 062
     Dates: start: 20100824, end: 20100901
  4. ENTOCORT EC [Concomitant]
  5. ASPIRIN [Concomitant]
  6. SYNTHROID [Concomitant]
  7. MORPHINE [Concomitant]
  8. AMBIEN [Concomitant]
  9. COLACE [Concomitant]
  10. EFFEXOR [Concomitant]
  11. PREMARIN [Concomitant]
  12. CELEBREX [Concomitant]
  13. XANAX [Concomitant]
  14. SIMVASTATIN [Concomitant]
  15. LYRICA [Concomitant]
  16. RESTASIS [Concomitant]

REACTIONS (5)
  - INCORRECT DRUG ADMINISTRATION DURATION [None]
  - ARTHRALGIA [None]
  - DRUG INEFFECTIVE [None]
  - PAIN IN EXTREMITY [None]
  - DIZZINESS [None]
